FAERS Safety Report 12451641 (Version 3)
Quarter: 2016Q4

REPORT INFORMATION
  Report Type: Spontaneous
  Country: US (occurrence: US)
  Receive Date: 20160609
  Receipt Date: 20161108
  Transmission Date: 20170207
  Serious: No
  Sender: FDA-Public Use
  Company Number: US-GLAXOSMITHKLINE-US2016081835

PATIENT
  Sex: Female

DRUGS (1)
  1. LOVAZA [Suspect]
     Active Substance: OMEGA-3-ACID ETHYL ESTERS
     Indication: PRODUCT USED FOR UNKNOWN INDICATION
     Dosage: 4 DF, 1D
     Route: 048

REACTIONS (6)
  - Malaise [Unknown]
  - Eructation [Unknown]
  - Nausea [Unknown]
  - Product quality issue [Unknown]
  - Product physical consistency issue [Unknown]
  - Product odour abnormal [Unknown]
